FAERS Safety Report 5241906-3 (Version None)
Quarter: 2007Q2

REPORT INFORMATION
  Report Type: 
  Country: None (occurrence: None)
  Receive Date: 20070220
  Receipt Date: 20070206
  Transmission Date: 20071010
  Serious: Yes (Other)
  Sender: FDA-Public Use
  Company Number: US-SHR-US-2007-000962

PATIENT
  Age: 54 Year
  Sex: Female
  Weight: 73 kg

DRUGS (11)
  1. BETASERON [Suspect]
     Indication: RELAPSING-REMITTING MULTIPLE SCLEROSIS
     Dosage: 8 MIU, EVERY 2D
     Route: 058
     Dates: start: 20001006
  2. SYNTHROID [Concomitant]
     Indication: SUPPLEMENTATION THERAPY
     Dosage: .15 MG, UNK
     Route: 048
  3. VICODIN [Concomitant]
     Indication: PAIN
     Dosage: 500 MG, UNK
     Route: 048
  4. AMBIEN [Concomitant]
     Dosage: 12.5 MG, UNK
     Route: 048
  5. LIPITOR [Concomitant]
     Dosage: 10 MG, UNK
     Route: 048
  6. NEURONTIN [Concomitant]
     Indication: NEUROPATHY
     Dosage: 800 MG, 3X/DAY
     Route: 048
  7. PROVIGIL [Concomitant]
     Indication: NARCOLEPSY
     Dosage: 200 MG, 1X/DAY
     Route: 048
  8. XANAX [Concomitant]
     Indication: ANXIETY
     Dosage: .5 MG, 2X/DAY
     Route: 048
  9. IBANDRONATE SODIUM (BONIVA) [Concomitant]
     Indication: OSTEOPOROSIS
     Dosage: 150 MG, 1X/MONTH
  10. CYMBALTA [Concomitant]
     Indication: DEPRESSION
     Dosage: 60 MG, 2X/DAY
     Route: 048
  11. CHANTIX [Suspect]
     Indication: SMOKING CESSATION THERAPY
     Dosage: 4 WEEKS
     Dates: start: 20061201

REACTIONS (1)
  - FACIAL PALSY [None]
